FAERS Safety Report 17146276 (Version 1)
Quarter: 2019Q4

REPORT INFORMATION
  Report Type: Spontaneous
  Country: FR (occurrence: FR)
  Receive Date: 20191212
  Receipt Date: 20191212
  Transmission Date: 20200122
  Serious: Yes (Hospitalization)
  Sender: FDA-Public Use
  Company Number: FR-TEVA-2019-FR-1149335

PATIENT
  Age: 78 Year
  Sex: Female
  Weight: 54.4 kg

DRUGS (11)
  1. ONDANSETRON [Concomitant]
     Active Substance: ONDANSETRON
     Indication: PREMEDICATION
     Dosage: 8 MG, CYCLICAL
     Route: 042
     Dates: start: 20190607, end: 20191001
  2. DOXORUBICINE [Suspect]
     Active Substance: DOXORUBICIN
     Indication: B-CELL LYMPHOMA
     Dosage: 66 MG, CYCLICAL
     Route: 042
     Dates: start: 20190607, end: 20191001
  3. VINCRISTINE (SULFATE DE) [Concomitant]
     Active Substance: VINCRISTINE SULFATE
     Indication: B-CELL LYMPHOMA
     Dosage: 2 MG, CYCLICAL
     Route: 042
     Dates: start: 20190607, end: 20191001
  4. CACIT VITAMINE D3 [Concomitant]
     Active Substance: CALCIUM CARBONATE\CHOLECALCIFEROL
     Indication: MINERAL SUPPLEMENTATION
     Dosage: 1 DOSAGE FORMS PER DAY
     Route: 048
  5. DEXCHLORPHENIRAMINE (MALEATE DE) [Concomitant]
     Active Substance: DEXCHLORPHENIRAMINE MALEATE
     Indication: PREMEDICATION
     Dosage: 5 MG, CYCLICAL
     Route: 042
     Dates: start: 20190607, end: 20191001
  6. RITUXIMAB ((MAMMIFERE/HAMSTER/CELLULES CHO)) [Concomitant]
     Active Substance: RITUXIMAB
     Indication: B-CELL LYMPHOMA
     Dosage: 560 MG, CYCLICAL
     Route: 042
     Dates: start: 20190606, end: 20190930
  7. CYCLOPHOSPHAMIDE. [Concomitant]
     Active Substance: CYCLOPHOSPHAMIDE
     Indication: B-CELL LYMPHOMA
     Dosage: 1120 MG, CYCLICAL
     Route: 042
     Dates: start: 20190607, end: 20191001
  8. PREDNISONE. [Concomitant]
     Active Substance: PREDNISONE
     Indication: B-CELL LYMPHOMA
     Dosage: 90 MG
     Route: 048
     Dates: start: 20190606, end: 20191004
  9. LIPANTHYL 160 MG, COMPRIME PELLICULE [Concomitant]
     Active Substance: FENOFIBRATE
     Indication: PRODUCT USED FOR UNKNOWN INDICATION
     Dosage: 2 DOSAGE FORMS PER WEEK
     Route: 048
  10. PARACETAMOL [Concomitant]
     Active Substance: ACETAMINOPHEN
     Indication: PREMEDICATION
     Dosage: 1 GRAM, CYCLICAL
     Route: 042
     Dates: start: 20190606, end: 20190930
  11. LYRICA [Concomitant]
     Active Substance: PREGABALIN
     Indication: NEUROPATHY PERIPHERAL
     Dosage: 150 MG
     Route: 048
     Dates: start: 201906

REACTIONS (2)
  - Bradycardia [Recovered/Resolved]
  - Atrioventricular block [Recovered/Resolved]

NARRATIVE: CASE EVENT DATE: 201909
